FAERS Safety Report 5393318-X (Version None)
Quarter: 2007Q3

REPORT INFORMATION
  Report Type: 
  Country: None (occurrence: None)
  Receive Date: 20070723
  Receipt Date: 20070716
  Transmission Date: 20080115
  Serious: Yes (Other)
  Sender: FDA-Public Use
  Company Number: PHBS2007IT12002

PATIENT
  Age: 73 Year
  Sex: Female

DRUGS (3)
  1. CYCLOSPORINE [Suspect]
     Indication: INCLUSION BODY MYOSITIS
     Dosage: 3 MG/KG/D
     Route: 065
     Dates: start: 20030701
  2. PREDNISONE [Concomitant]
     Indication: INCLUSION BODY MYOSITIS
     Dosage: 1 MG/KG/D
     Route: 065
     Dates: start: 20030701
  3. PREDNISONE [Concomitant]
     Dosage: 5 MG/D
     Route: 065

REACTIONS (2)
  - INAPPROPRIATE ANTIDIURETIC HORMONE SECRETION [None]
  - RESPIRATORY FAILURE [None]
